FAERS Safety Report 13463440 (Version 1)
Quarter: 2017Q2

REPORT INFORMATION
  Report Type: Spontaneous
  Country: IT (occurrence: IT)
  Receive Date: 20170420
  Receipt Date: 20170420
  Transmission Date: 20170830
  Serious: Yes (Hospitalization)
  Sender: FDA-Public Use
  Company Number: PHHY2017IT056635

PATIENT
  Age: 27 Year
  Sex: Female

DRUGS (2)
  1. CITALOPRAM [Suspect]
     Active Substance: CITALOPRAM HYDROBROMIDE
     Indication: DRUG USE DISORDER
     Dosage: 15 ML, ONCE/SINGLE
     Route: 048
     Dates: start: 20160920, end: 20160920
  2. BRINTELLIX [Suspect]
     Active Substance: VORTIOXETINE HYDROBROMIDE
     Indication: DRUG USE DISORDER
     Dosage: 7 ML, ONCE/SINGLE
     Route: 048
     Dates: start: 20160920, end: 20160920

REACTIONS (5)
  - Electrocardiogram QT prolonged [Unknown]
  - Drug use disorder [Unknown]
  - Sopor [Unknown]
  - Tachycardia [Unknown]
  - Retching [Unknown]

NARRATIVE: CASE EVENT DATE: 20160920
